FAERS Safety Report 10025835 (Version 1)
Quarter: 2014Q1

REPORT INFORMATION
  Report Type: Spontaneous
  Country: US (occurrence: US)
  Receive Date: 20140320
  Receipt Date: 20140320
  Transmission Date: 20141002
  Serious: No
  Sender: FDA-Public Use
  Company Number: US-009507513-1403USA007828

PATIENT
  Age: 73 Year
  Sex: Female
  Weight: 89.8 kg

DRUGS (11)
  1. JANUVIA [Suspect]
     Indication: GLUCOSE TOLERANCE IMPAIRED
     Dosage: 100 MG DAILY
     Route: 048
     Dates: start: 20140306
  2. PANTOPRAZOLE [Concomitant]
  3. LEVOTHYROXINE SODIUM [Concomitant]
     Indication: HYPOTHYROIDISM
     Dosage: 50^MG^ EVERY MORNING FOR HYPOTHYROIDISM
     Route: 048
  4. AMLODIPINE [Concomitant]
     Indication: HYPERTENSION
  5. CLONIDINE [Concomitant]
  6. HYDROCHLOROTHIAZIDE [Concomitant]
     Route: 048
  7. TOPROL XL TABLETS [Concomitant]
  8. OMEGA-3 MARINE TRIGLYCERIDES [Concomitant]
  9. BENICAR [Concomitant]
  10. VITAMINS (UNSPECIFIED) [Concomitant]
  11. ATORVASTATIN [Concomitant]
     Indication: BLOOD CHOLESTEROL INCREASED

REACTIONS (4)
  - Dysstasia [Not Recovered/Not Resolved]
  - Dizziness [Not Recovered/Not Resolved]
  - Malaise [Not Recovered/Not Resolved]
  - Abdominal discomfort [Not Recovered/Not Resolved]
